FAERS Safety Report 17860854 (Version 1)
Quarter: 2020Q2

REPORT INFORMATION
  Report Type: Report from Study
  Country: GB (occurrence: GB)
  Receive Date: 20200604
  Receipt Date: 20200604
  Transmission Date: 20200714
  Serious: Yes (Other)
  Sender: FDA-Public Use
  Company Number: GB-PFIZER INC-2020215881

PATIENT
  Age: 49 Year
  Sex: Male

DRUGS (2)
  1. IMRALDI [Suspect]
     Active Substance: ADALIMUMAB
     Indication: RHEUMATOID ARTHRITIS
     Dosage: 40 MG, EVERY 2 WEEKS
     Route: 058
     Dates: start: 20200127
  2. IBUPROFEN. [Suspect]
     Active Substance: IBUPROFEN
     Dosage: UNK
     Route: 065

REACTIONS (3)
  - Headache [Unknown]
  - Hepatitis [Recovered/Resolved]
  - Musculoskeletal pain [Unknown]
